FAERS Safety Report 5503383-4 (Version None)
Quarter: 2007Q4

REPORT INFORMATION
  Report Type: 
  Country: None (occurrence: None)
  Receive Date: 20071031
  Receipt Date: 20071019
  Transmission Date: 20080405
  Serious: Yes (Other)
  Sender: FDA-Public Use
  Company Number: US-PFIZER INC-2007071583

PATIENT
  Sex: Male
  Weight: 81 kg

DRUGS (2)
  1. CHANTIX [Suspect]
     Indication: SMOKING CESSATION THERAPY
  2. ZETIA [Concomitant]
     Indication: BLOOD CHOLESTEROL

REACTIONS (5)
  - DEAFNESS [None]
  - DIPLOPIA [None]
  - LACRIMATION INCREASED [None]
  - NERVOUS SYSTEM DISORDER [None]
  - VISION BLURRED [None]
